FAERS Safety Report 16030447 (Version 1)
Quarter: 2019Q1

REPORT INFORMATION
  Report Type: Spontaneous
  Country: ZA (occurrence: ZA)
  Receive Date: 20190304
  Receipt Date: 20190304
  Transmission Date: 20190418
  Serious: Yes (Other)
  Sender: FDA-Public Use
  Company Number: ZA-JNJFOC-20190232476

PATIENT
  Sex: Male

DRUGS (1)
  1. REVELLEX [Suspect]
     Active Substance: INFLIXIMAB
     Indication: COLITIS ULCERATIVE
     Route: 042

REACTIONS (1)
  - Squamous cell carcinoma [Unknown]

NARRATIVE: CASE EVENT DATE: 201902
